FAERS Safety Report 12385435 (Version 1)
Quarter: 2016Q2

REPORT INFORMATION
  Report Type: Report from Study
  Country: US (occurrence: US)
  Receive Date: 20160519
  Receipt Date: 20160519
  Transmission Date: 20160815
  Serious: Yes (Other)
  Sender: FDA-Public Use
  Company Number: US-ACTELION-A-NJ2016-136227

PATIENT
  Age: 35 Year
  Sex: Female

DRUGS (2)
  1. ADCIRCA [Concomitant]
     Active Substance: TADALAFIL
  2. MACITENTAN [Suspect]
     Active Substance: MACITENTAN
     Indication: PULMONARY HYPERTENSION
     Dosage: 10 MG, QD
     Route: 048

REACTIONS (7)
  - Dizziness [Unknown]
  - Alopecia [Unknown]
  - Headache [Unknown]
  - Uterine mass [Unknown]
  - Onychoclasis [Unknown]
  - Nausea [Unknown]
  - Fatigue [Unknown]
